FAERS Safety Report 6999893-3 (Version None)
Quarter: 2010Q3

REPORT INFORMATION
  Report Type: 
  Country: None (occurrence: None)
  Receive Date: 20100920
  Receipt Date: 20100311
  Transmission Date: 20110219
  Serious: Yes (Other)
  Sender: FDA-Public Use
  Company Number: US-ASTRAZENECA-2008UW25652

PATIENT
  Age: 59 Year
  Sex: Male
  Weight: 72.6 kg

DRUGS (22)
  1. SEROQUEL [Suspect]
     Indication: BIPOLAR DISORDER
     Route: 048
     Dates: start: 19950101, end: 20080101
  2. SEROQUEL [Suspect]
     Indication: DEPRESSION
     Route: 048
     Dates: start: 19950101, end: 20080101
  3. SEROQUEL [Suspect]
     Indication: SCHIZOPHRENIA
     Route: 048
     Dates: start: 19950101, end: 20080101
  4. SEROQUEL [Suspect]
     Indication: ANXIETY
     Route: 048
     Dates: start: 19950101, end: 20080101
  5. SEROQUEL [Suspect]
     Route: 048
     Dates: start: 20051013
  6. SEROQUEL [Suspect]
     Route: 048
     Dates: start: 20051013
  7. SEROQUEL [Suspect]
     Route: 048
     Dates: start: 20051013
  8. SEROQUEL [Suspect]
     Route: 048
     Dates: start: 20051013
  9. SEROQUEL [Suspect]
     Route: 048
     Dates: start: 20051121
  10. SEROQUEL [Suspect]
     Route: 048
     Dates: start: 20051121
  11. SEROQUEL [Suspect]
     Route: 048
     Dates: start: 20051121
  12. SEROQUEL [Suspect]
     Route: 048
     Dates: start: 20051121
  13. CLOZARIL [Concomitant]
     Dates: start: 19700601
  14. GEODON [Concomitant]
     Dates: start: 19700601
  15. THORAZINE [Concomitant]
  16. LITHIUM [Concomitant]
     Dates: start: 20040701
  17. DEPAKOTE [Concomitant]
     Dates: start: 20040701
  18. DEPAKOTE [Concomitant]
     Dates: start: 20050602
  19. CLONAZEPAM [Concomitant]
     Dates: start: 20050428
  20. ALLOPURINOL [Concomitant]
     Dates: start: 20050602
  21. LITHIUM CARBONATE [Concomitant]
     Dates: start: 20050602
  22. FERROUS GLUCONATE [Concomitant]
     Dates: start: 20051121

REACTIONS (3)
  - DIABETES MELLITUS [None]
  - KETOACIDOSIS [None]
  - TARDIVE DYSKINESIA [None]
